FAERS Safety Report 24155311 (Version 1)
Quarter: 2024Q3

REPORT INFORMATION
  Report Type: Spontaneous
  Country: US (occurrence: US)
  Receive Date: 20240731
  Receipt Date: 20240731
  Transmission Date: 20241016
  Serious: No
  Sender: BLUEPRINT MEDICINES
  Company Number: US-Blueprint Medicines Corporation-SP-US-2024-001513

PATIENT

DRUGS (2)
  1. AYVAKIT [Suspect]
     Active Substance: AVAPRITINIB
     Indication: Advanced systemic mastocytosis
     Dosage: 200
     Route: 065
  2. AYVAKIT [Suspect]
     Active Substance: AVAPRITINIB
     Dosage: 100
     Route: 065

REACTIONS (1)
  - Eyelid oedema [Unknown]
